FAERS Safety Report 21598698 (Version 2)
Quarter: 2022Q4

REPORT INFORMATION
  Report Type: Spontaneous
  Country: US (occurrence: US)
  Receive Date: 20221115
  Receipt Date: 20221117
  Transmission Date: 20230112
  Serious: No
  Sender: FDA-Public Use
  Company Number: US-002147023-NVSC2022US256862

PATIENT
  Age: 56 Year
  Sex: Female

DRUGS (2)
  1. COMBIPATCH [Suspect]
     Active Substance: ESTRADIOL\NORETHINDRONE ACETATE
     Indication: Menopause
     Dosage: 0.05/0.14MG (EVERY MONDAY AND THURSDAY, START ABOUT THREE YEARS PRIOR TO THIS REPORT))
     Route: 062
  2. COMBIPATCH [Suspect]
     Active Substance: ESTRADIOL\NORETHINDRONE ACETATE
     Indication: Blood oestrogen decreased
     Dosage: 0.05/0.14MG (EVERY MONDAY AND THURSDAY)
     Route: 065
     Dates: start: 2022

REACTIONS (2)
  - Postmenopausal haemorrhage [Not Recovered/Not Resolved]
  - Product storage error [Not Recovered/Not Resolved]
